FAERS Safety Report 16028934 (Version 1)
Quarter: 2019Q1

REPORT INFORMATION
  Report Type: Spontaneous
  Country: GB (occurrence: GB)
  Receive Date: 20190304
  Receipt Date: 20190304
  Transmission Date: 20190418
  Serious: Yes (Other)
  Sender: FDA-Public Use
  Company Number: GB-PFIZER INC-17090

PATIENT
  Age: 21 Year
  Sex: Female

DRUGS (4)
  1. CEFTAZIDIME. [Suspect]
     Active Substance: CEFTAZIDIME
     Indication: ANTIBIOTIC THERAPY
     Dosage: UNK
     Route: 065
  2. COLISTIN [Suspect]
     Active Substance: COLISTIN
     Indication: ANTIBIOTIC THERAPY
  3. DICLOFENAC [Suspect]
     Active Substance: DICLOFENAC
     Route: 065
  4. GENTAMICIN SULFATE. [Suspect]
     Active Substance: GENTAMICIN SULFATE
     Indication: ANTIBIOTIC THERAPY
     Dosage: 5.06 MG/KG, FREQ: TID
     Route: 042
     Dates: start: 1997, end: 2004

REACTIONS (1)
  - Acute kidney injury [Recovered/Resolved]
